FAERS Safety Report 5092064-X (Version None)
Quarter: 2006Q3

REPORT INFORMATION
  Report Type: 
  Country: None (occurrence: None)
  Receive Date: 20060825
  Receipt Date: 20060814
  Transmission Date: 20061208
  Serious: Yes (Hospitalization)
  Sender: FDA-Public Use
  Company Number: RENA-11808

PATIENT
  Age: 70 Year
  Sex: Male
  Weight: 49.5 kg

DRUGS (11)
  1. RENAGEL [Suspect]
     Indication: HYPERPHOSPHATAEMIA
     Dosage: 1.5 G TID PO
     Route: 048
     Dates: start: 20031215, end: 20050404
  2. HYTRIN [Concomitant]
  3. FAMOTIDINE [Concomitant]
  4. ZEFLOPTO (LIMAPROSIT ALFADEX) [Concomitant]
  5. CORTRIL [Concomitant]
  6. VIT K CAP [Concomitant]
  7. LASIX [Concomitant]
  8. ALFAROL (ALFACALCIDOL) [Concomitant]
  9. LEVOTHYROXINE SODIUM [Concomitant]
  10. MICARDIS [Concomitant]
  11. EPOGEN [Concomitant]

REACTIONS (8)
  - ABDOMINAL DISTENSION [None]
  - ATRIAL FIBRILLATION [None]
  - BLOOD PRESSURE DECREASED [None]
  - CONSTIPATION [None]
  - FLATULENCE [None]
  - INTESTINAL OBSTRUCTION [None]
  - PYREXIA [None]
  - SHOCK [None]
